FAERS Safety Report 7469613-7 (Version None)
Quarter: 2011Q2

REPORT INFORMATION
  Report Type: 
  Country: None (occurrence: None)
  Receive Date: 20110506
  Receipt Date: 20110506
  Transmission Date: 20111010
  Serious: Yes (Hospitalization)
  Sender: FDA-Public Use
  Company Number: None

PATIENT
  Sex: Male
  Weight: 63.3 kg

DRUGS (4)
  1. DOXIL [Suspect]
     Dosage: 69 MG
  2. CYCLOPHOSPHAMIDE [Suspect]
     Dosage: 1298 MG
  3. PREDNISONE [Suspect]
     Dosage: 500 MG
  4. RITUXIMAB (MOAB C2B8 ANTI CD20, CHIMERIC) [Suspect]
     Dosage: 649 MG

REACTIONS (6)
  - DIZZINESS [None]
  - MELAENA [None]
  - ABDOMINAL PAIN [None]
  - GASTRIC ULCER [None]
  - DECREASED APPETITE [None]
  - HAEMATOCHEZIA [None]
